FAERS Safety Report 19670324 (Version 1)
Quarter: 2021Q3

REPORT INFORMATION
  Report Type: Spontaneous
  Country: US (occurrence: US)
  Receive Date: 20210806
  Receipt Date: 20210806
  Transmission Date: 20211014
  Serious: Yes (Other)
  Sender: FDA-Public Use
  Company Number: US-SAOL THERAPEUTICS-2020SAO00430

PATIENT
  Sex: Male

DRUGS (2)
  1. LIORESAL [Suspect]
     Active Substance: BACLOFEN
     Dosage: 285 ?G, \DAY (CURRENT DOSE AS OF 17?SEP?2020)
     Route: 037
     Dates: start: 2020
  2. LIORESAL [Suspect]
     Active Substance: BACLOFEN
     Dosage: UNK; INCREASED A TOTAL OF 15% OVER LAST FEW WEEKS (RELATIVE TO 17?SEP?2020)
     Dates: end: 2020

REACTIONS (4)
  - Therapeutic response decreased [Not Recovered/Not Resolved]
  - Muscle spasticity [Not Recovered/Not Resolved]
  - Fall [Unknown]
  - Complication associated with device [Not Recovered/Not Resolved]

NARRATIVE: CASE EVENT DATE: 2020
